FAERS Safety Report 4635742-6 (Version None)
Quarter: 2005Q2

REPORT INFORMATION
  Report Type: 
  Country: None (occurrence: None)
  Receive Date: 20050413
  Receipt Date: 20050401
  Transmission Date: 20051028
  Serious: Yes (Other)
  Sender: FDA-Public Use
  Company Number: 2004113576

PATIENT
  Age: 68 Year
  Sex: Female
  Weight: 73.4827 kg

DRUGS (13)
  1. LIPITOR [Suspect]
     Indication: ILL-DEFINED DISORDER
     Dosage: 10 MG (10 MG, 1 IN 1 D), ORAL
     Route: 048
     Dates: start: 20011011, end: 20030916
  2. EZETIMIBE (EZETIMIBE) [Suspect]
     Indication: HYPERLIPIDAEMIA
     Dosage: 10 MG (1 IN 1 D), ORAL
     Route: 048
     Dates: start: 20031114
  3. ALL OTHER NON-THERAPEUTIC PRODUCTS (ALL OTHER NON-THERAPEUTIC PRODUCTS [Suspect]
     Indication: ILL-DEFINED DISORDER
  4. MEPROBAMATE [Concomitant]
  5. CONJUGATED ESTROGENS [Concomitant]
  6. VERAPAMIL HCL [Concomitant]
  7. CHLOROTHIAZIDE [Concomitant]
  8. PREDNISONE [Concomitant]
  9. QUININE SULFATE (QUININE SULFATE) [Concomitant]
  10. POTASSIUM ACETATE [Concomitant]
  11. ASCRIPTION (ACETYLSALICYLIC ACID, ALUMINIUM HYDROXIDE, MAGNESIUM HYDRO [Concomitant]
  12. CHLOROTHIAZIDE [Concomitant]
  13. PRAVASTATIN SODIUM [Concomitant]

REACTIONS (45)
  - ABDOMINAL PAIN [None]
  - ARRHYTHMIA [None]
  - ARTHRALGIA [None]
  - ARTHRITIS [None]
  - ASTHENIA [None]
  - BACK PAIN [None]
  - BEDRIDDEN [None]
  - BLOOD CHOLESTEROL INCREASED [None]
  - BLOOD PRESSURE INCREASED [None]
  - BLOOD TRIGLYCERIDES INCREASED [None]
  - CELLULITIS [None]
  - CHEST DISCOMFORT [None]
  - CHEST PAIN [None]
  - CHROMATURIA [None]
  - DECREASED APPETITE [None]
  - DEHYDRATION [None]
  - DIZZINESS [None]
  - DRUG EFFECT DECREASED [None]
  - DRUG HYPERSENSITIVITY [None]
  - DYSGEUSIA [None]
  - DYSPNOEA [None]
  - ENTERITIS [None]
  - FATIGUE [None]
  - HAEMATOMA [None]
  - HAEMORRHOIDAL HAEMORRHAGE [None]
  - HEADACHE [None]
  - HEPATITIS [None]
  - HYPERHIDROSIS [None]
  - INFLAMMATION [None]
  - LIPIDS INCREASED [None]
  - LOW DENSITY LIPOPROTEIN INCREASED [None]
  - MUSCLE STRAIN [None]
  - NASAL CONGESTION [None]
  - NIGHT SWEATS [None]
  - ORAL INTAKE REDUCED [None]
  - OSTEOARTHRITIS [None]
  - PAIN IN EXTREMITY [None]
  - PALPITATIONS [None]
  - PROTEIN URINE PRESENT [None]
  - PYREXIA [None]
  - SOMNOLENCE [None]
  - TACHYCARDIA [None]
  - VITREOUS FLOATERS [None]
  - VOMITING [None]
  - WHITE BLOOD CELLS URINE POSITIVE [None]
